FAERS Safety Report 20863315 (Version 1)
Quarter: 2022Q2

REPORT INFORMATION
  Report Type: Report from Study
  Country: US (occurrence: US)
  Receive Date: 20220523
  Receipt Date: 20220523
  Transmission Date: 20220721
  Serious: Yes (Hospitalization)
  Sender: FDA-Public Use
  Company Number: US-BRISTOL-MYERS SQUIBB COMPANY-2022-037871

PATIENT
  Age: 74 Year
  Sex: Female
  Weight: 72.5 kg

DRUGS (3)
  1. ELIQUIS [Suspect]
     Active Substance: APIXABAN
     Indication: Deep vein thrombosis
     Dosage: TWO 5 MG TABLETS TWICE DAILY FOR SEVEN DAYS AND THEN ONE 5 MG TABLET DAILY FOR THE REMAINDER OF 90 D
     Route: 048
     Dates: start: 20220303
  2. ATENOLOL [Concomitant]
     Active Substance: ATENOLOL
  3. CALCIUM [Concomitant]
     Active Substance: CALCIUM

REACTIONS (2)
  - Peripheral swelling [Unknown]
  - Joint swelling [Unknown]
